FAERS Safety Report 10551718 (Version 1)
Quarter: 2014Q4

REPORT INFORMATION
  Report Type: Spontaneous
  Country: US (occurrence: US)
  Receive Date: 20141029
  Receipt Date: 20141029
  Transmission Date: 20150529
  Serious: No
  Sender: FDA-Public Use
  Company Number: US-PFIZER INC-2014294811

PATIENT
  Sex: Female

DRUGS (1)
  1. LEVOXYL [Suspect]
     Active Substance: LEVOTHYROXINE SODIUM
     Dosage: UNK

REACTIONS (6)
  - Ear infection [Unknown]
  - Rash [Unknown]
  - Hypersensitivity [Unknown]
  - Insomnia [Unknown]
  - Dysphonia [Not Recovered/Not Resolved]
  - Eye infection [Unknown]
